FAERS Safety Report 9577936 (Version 1)
Quarter: 2013Q4

REPORT INFORMATION
  Report Type: Spontaneous
  Country: US (occurrence: US)
  Receive Date: 20131001
  Receipt Date: 20131001
  Transmission Date: 20140711
  Serious: No
  Sender: FDA-Public Use
  Company Number: US-AMGEN-USASP2013010516

PATIENT
  Age: 60 Year
  Sex: Female
  Weight: 74.83 kg

DRUGS (6)
  1. ENBREL [Suspect]
     Indication: PRODUCT USED FOR UNKNOWN INDICATION
     Dosage: 50 MG, QWK
     Route: 058
  2. METHOTREXATE [Concomitant]
     Dosage: 2.5 MG, UNK
  3. FOLIC ACID [Concomitant]
     Dosage: UNK
  4. SYNTHROID [Concomitant]
     Dosage: 25 MUG, UNK
  5. CITRACAL                           /00751520/ [Concomitant]
     Dosage: UNK, CHW GUMMIES
  6. LEXAPRO [Concomitant]
     Dosage: 5 MG, UNK

REACTIONS (1)
  - Dizziness [Recovered/Resolved]
